FAERS Safety Report 18031463 (Version 1)
Quarter: 2020Q3

REPORT INFORMATION
  Report Type: Spontaneous
  Country: US (occurrence: US)
  Receive Date: 20200716
  Receipt Date: 20200716
  Transmission Date: 20201103
  Serious: No
  Sender: FDA-Public Use
  Company Number: US-PFIZER INC-2020268310

PATIENT
  Age: 90 Year
  Sex: Female

DRUGS (17)
  1. RETINOL [Concomitant]
     Active Substance: RETINOL
     Dosage: UNK
  2. THIAMINE MONONITRATE [Concomitant]
     Active Substance: THIAMINE MONONITRATE
     Dosage: UNK
  3. ESTROPIPATE. [Concomitant]
     Active Substance: ESTROPIPATE
     Dosage: UNK
  4. NICOTINAMIDE [Concomitant]
     Active Substance: NIACINAMIDE
     Dosage: UNK
  5. PYRIDOXINE HYDROCHLORIDE. [Concomitant]
     Active Substance: PYRIDOXINE HYDROCHLORIDE
     Dosage: UNK
  6. MECLIZINE [Suspect]
     Active Substance: MECLIZINE HYDROCHLORIDE
     Dosage: UNK
  7. COLECALCIFEROL [Concomitant]
     Active Substance: CHOLECALCIFEROL
     Dosage: UNK
  8. JAKAFI [Suspect]
     Active Substance: RUXOLITINIB
     Indication: MYELOFIBROSIS
     Dosage: 5 MG, 2X/DAY
     Route: 048
     Dates: start: 20180710
  9. RIBOFLAVIN [Concomitant]
     Active Substance: RIBOFLAVIN
     Dosage: UNK
  10. SODIUM ASCORBATE [Concomitant]
     Active Substance: SODIUM ASCORBATE
     Dosage: UNK
  11. ASCORBIC ACID. [Concomitant]
     Active Substance: ASCORBIC ACID
     Dosage: UNK
  12. SODIUM FLUORIDE. [Concomitant]
     Active Substance: SODIUM FLUORIDE
     Dosage: UNK
  13. CYANOCOBALAMIN. [Concomitant]
     Active Substance: CYANOCOBALAMIN
     Dosage: UNK
  14. FOLIC ACID. [Concomitant]
     Active Substance: FOLIC ACID
     Dosage: UNK
  15. TOCOPHERYL ACETATE [Concomitant]
     Active Substance: .ALPHA.-TOCOPHEROL ACETATE
     Dosage: UNK
  16. AMLODIPINE BESILATE [Suspect]
     Active Substance: AMLODIPINE BESYLATE
     Dosage: UNK
  17. OMEGA 3 FISH OIL [FISH OIL] [Concomitant]
     Dosage: UNK

REACTIONS (1)
  - Rash [Unknown]
